FAERS Safety Report 8281813-5 (Version None)
Quarter: 2012Q2

REPORT INFORMATION
  Report Type: 
  Country: None (occurrence: None)
  Receive Date: 20120413
  Receipt Date: 20120403
  Transmission Date: 20120825
  Serious: Yes (Death, Hospitalization)
  Sender: FDA-Public Use
  Company Number: JP-JNJFOC-20101104528

PATIENT
  Age: 74 Year
  Sex: Female

DRUGS (3)
  1. REMICADE [Suspect]
     Indication: RHEUMATOID ARTHRITIS
     Dosage: APPROXIMATELY 40TH DOSE
     Route: 042
     Dates: start: 20100301
  2. METHOTREXATE [Concomitant]
     Indication: RHEUMATOID ARTHRITIS
     Route: 048
  3. REMICADE [Suspect]
     Route: 042
     Dates: start: 20040201

REACTIONS (8)
  - RENAL FAILURE [None]
  - ESCHERICHIA INFECTION [None]
  - HEPATIC FAILURE [None]
  - DYSPNOEA [None]
  - BACTERIAL PYELONEPHRITIS [None]
  - ESCHERICHIA URINARY TRACT INFECTION [None]
  - MULTI-ORGAN FAILURE [None]
  - HISTIOCYTOSIS HAEMATOPHAGIC [None]
